FAERS Safety Report 10248437 (Version 1)
Quarter: 2014Q2

REPORT INFORMATION
  Report Type: Spontaneous
  Country: US (occurrence: US)
  Receive Date: 20140620
  Receipt Date: 20140620
  Transmission Date: 20141212
  Serious: No
  Sender: FDA-Public Use
  Company Number: US-009507513-1406USA004244

PATIENT
  Age: 50 Year
  Sex: Male
  Weight: 95.69 kg

DRUGS (1)
  1. NASONEX [Suspect]
     Dosage: 1 SPRAY ONCE DAILY
     Route: 045
     Dates: start: 20140508, end: 20140510

REACTIONS (1)
  - Rash [Recovered/Resolved]
